FAERS Safety Report 15902609 (Version 1)
Quarter: 2019Q1

REPORT INFORMATION
  Report Type: Spontaneous
  Country: US (occurrence: US)
  Receive Date: 20190201
  Receipt Date: 20190201
  Transmission Date: 20190417
  Serious: No
  Sender: FDA-Public Use
  Company Number: US-JNJFOC-20190104943

PATIENT
  Age: 72 Year
  Sex: Female
  Weight: 61.69 kg

DRUGS (2)
  1. WOMENS ROGAINE UNSCENTED [Suspect]
     Active Substance: MINOXIDIL
     Route: 061
  2. WOMENS ROGAINE UNSCENTED [Suspect]
     Active Substance: MINOXIDIL
     Indication: ALOPECIA
     Dosage: 1/2 CAP-FULL
     Route: 061
     Dates: start: 20181119, end: 20181210

REACTIONS (5)
  - Hair texture abnormal [Recovered/Resolved]
  - Product formulation issue [Unknown]
  - Poor quality product administered [Unknown]
  - Hair injury [Recovered/Resolved]
  - Product use in unapproved indication [Unknown]

NARRATIVE: CASE EVENT DATE: 20181119
